FAERS Safety Report 9818306 (Version 3)
Quarter: 2014Q2

REPORT INFORMATION
  Report Type: Spontaneous
  Country: DE (occurrence: DE)
  Receive Date: 20140115
  Receipt Date: 20140416
  Transmission Date: 20141212
  Serious: Yes (Other)
  Sender: FDA-Public Use
  Company Number: DE-SA-2014SA003691

PATIENT
  Age: 43 Year
  Sex: Female

DRUGS (1)
  1. AUBAGIO [Suspect]
     Indication: MULTIPLE SCLEROSIS
     Route: 048
     Dates: start: 201310, end: 20140106

REACTIONS (5)
  - Abscess jaw [Not Recovered/Not Resolved]
  - Swelling face [Not Recovered/Not Resolved]
  - Gingival pain [Not Recovered/Not Resolved]
  - Gingival bleeding [Not Recovered/Not Resolved]
  - Gingival inflammation [Not Recovered/Not Resolved]
